FAERS Safety Report 23855726 (Version 1)
Quarter: 2024Q2

REPORT INFORMATION
  Report Type: Report from Study
  Country: US (occurrence: US)
  Receive Date: 20240514
  Receipt Date: 20240514
  Transmission Date: 20240717
  Serious: No
  Sender: FDA-Public Use
  Company Number: US-SANDOZ-SDZ2023US032466

PATIENT
  Sex: Male

DRUGS (2)
  1. OMNITROPE [Suspect]
     Active Substance: SOMATROPIN
     Indication: Product used for unknown indication
     Dosage: 2 MG DAILY X 6 DAYS A WEEK
     Route: 058
  2. OMNITROPE [Suspect]
     Active Substance: SOMATROPIN
     Indication: Product used for unknown indication
     Dosage: 2 MG DAILY X 6 DAYS A WEEK
     Route: 058

REACTIONS (2)
  - Incorrect dose administered by product [Unknown]
  - Device leakage [Unknown]
